FAERS Safety Report 11002933 (Version 3)
Quarter: 2015Q2

REPORT INFORMATION
  Report Type: Spontaneous
  Country: ES (occurrence: ES)
  Receive Date: 20150408
  Receipt Date: 20150416
  Transmission Date: 20150821
  Serious: Yes (Other)
  Sender: FDA-Public Use
  Company Number: ES-ALLERGAN-1505698US

PATIENT
  Age: 83 Year
  Sex: Male

DRUGS (7)
  1. ALPHAGAN P [Suspect]
     Active Substance: BRIMONIDINE TARTRATE
     Indication: INTRAOCULAR PRESSURE INCREASED
     Dosage: UNKNOWN
     Route: 047
  2. AZARGA [Suspect]
     Active Substance: BRINZOLAMIDE\TIMOLOL MALEATE
     Indication: PRODUCT USED FOR UNKNOWN INDICATION
     Route: 047
  3. XALATAN [Suspect]
     Active Substance: LATANOPROST
     Indication: PRODUCT USED FOR UNKNOWN INDICATION
     Dosage: UNKNOWN
     Route: 047
  4. FML [Suspect]
     Active Substance: FLUOROMETHOLONE
     Indication: ANTIINFLAMMATORY THERAPY
     Dosage: UNK UNK, TID
     Route: 047
  5. GANFORT [Suspect]
     Active Substance: BIMATOPROST\TIMOLOL
     Indication: INTRAOCULAR PRESSURE INCREASED
     Dosage: UNKNOWN
     Route: 047
  6. OFTACILOX [Suspect]
     Active Substance: CIPROFLOXACIN HYDROCHLORIDE
     Indication: PRODUCT USED FOR UNKNOWN INDICATION
     Dosage: UNKNOWN
     Route: 047
  7. MAXIDEX [Suspect]
     Active Substance: DEXAMETHASONE
     Indication: PRODUCT USED FOR UNKNOWN INDICATION
     Dosage: UNKNOWN
     Route: 047

REACTIONS (13)
  - Ulcerative keratitis [Recovering/Resolving]
  - Corneal neovascularisation [Recovering/Resolving]
  - Corneal infiltrates [Recovering/Resolving]
  - Inappropriate schedule of drug administration [Unknown]
  - Corneal thinning [Recovering/Resolving]
  - Intraocular pressure increased [Recovering/Resolving]
  - Eye pain [Recovering/Resolving]
  - Hypopyon [Recovering/Resolving]
  - Enterococcal infection [Recovering/Resolving]
  - Corneal oedema [Recovering/Resolving]
  - Visual acuity reduced [Recovering/Resolving]
  - Ocular hyperaemia [Recovering/Resolving]
  - Corneal degeneration [Recovering/Resolving]
